FAERS Safety Report 6914156-X (Version None)
Quarter: 2010Q3

REPORT INFORMATION
  Report Type: 
  Country: None (occurrence: None)
  Receive Date: 20100809
  Receipt Date: 20100805
  Transmission Date: 20110219
  Serious: Yes (Other)
  Sender: FDA-Public Use
  Company Number: IT-BRISTOL-MYERS SQUIBB COMPANY-15226426

PATIENT
  Age: 52 Year
  Sex: Male

DRUGS (2)
  1. KARVEA TABS 300 MG [Suspect]
     Route: 048
     Dates: start: 20100729, end: 20100805
  2. KARVEZIDE [Suspect]
     Dates: start: 20100729, end: 20100805

REACTIONS (2)
  - DRUG ADMINISTRATION ERROR [None]
  - HYPOTENSION [None]
